FAERS Safety Report 25101786 (Version 1)
Quarter: 2025Q1

REPORT INFORMATION
  Report Type: Spontaneous
  Country: FR (occurrence: FR)
  Receive Date: 20250320
  Receipt Date: 20250320
  Transmission Date: 20250409
  Serious: Yes (Other)
  Sender: PFIZER
  Company Number: None

PATIENT
  Age: 63 Year
  Sex: Male
  Weight: 74 kg

DRUGS (2)
  1. PIPERACILLIN SODIUM\TAZOBACTAM SODIUM [Suspect]
     Active Substance: PIPERACILLIN SODIUM\TAZOBACTAM SODIUM
     Indication: Infection
     Dates: start: 20250304, end: 20250311
  2. CITALOPRAM HYDROCHLORIDE [Suspect]
     Active Substance: CITALOPRAM HYDROCHLORIDE
     Indication: Depression
     Route: 048
     Dates: start: 20250306, end: 20250311

REACTIONS (1)
  - Myoclonus [Not Recovered/Not Resolved]

NARRATIVE: CASE EVENT DATE: 20250308
